FAERS Safety Report 9185745 (Version 2)
Quarter: 2013Q1

REPORT INFORMATION
  Report Type: Spontaneous
  Country: JP (occurrence: JP)
  Receive Date: 20130325
  Receipt Date: 20130328
  Transmission Date: 20140127
  Serious: Yes (Hospitalization)
  Sender: FDA-Public Use
  Company Number: JP-AMGEN-JPNSP2013019810

PATIENT
  Age: 74 Year
  Sex: Female
  Weight: 42 kg

DRUGS (9)
  1. VECTIBIX [Suspect]
     Indication: COLON CANCER
     Dosage: 240 MG, Q2WK
     Route: 041
     Dates: start: 20121126, end: 20130218
  2. FLUOROURACIL [Concomitant]
     Indication: COLON CANCER
     Dosage: UNK
     Route: 042
     Dates: start: 20121015
  3. OXALIPLATIN [Concomitant]
     Indication: COLON CANCER
     Dosage: UNK UNK, Q2WK
     Route: 041
     Dates: start: 20121015
  4. CALCIUM LEVOFOLINATE [Concomitant]
     Indication: COLON CANCER
     Dosage: UNK
     Route: 041
     Dates: start: 20121015
  5. MAGMITT [Concomitant]
     Indication: ANTACID THERAPY
     Dosage: 250 MG, TID
     Route: 048
     Dates: start: 20121015, end: 20130315
  6. TALION                             /01587402/ [Concomitant]
     Indication: DERMATITIS
     Dosage: 10 MG, BID
     Route: 048
     Dates: start: 20121015, end: 20130315
  7. SINSERON [Concomitant]
     Indication: ABDOMINAL DISCOMFORT
     Dosage: 8 MG, QD
     Route: 048
     Dates: start: 20121015, end: 20130315
  8. MINOMYCIN [Concomitant]
     Indication: DERMATITIS
     Dosage: 100 MG, QD
     Route: 048
     Dates: start: 20121126, end: 20121225
  9. MINOMYCIN [Concomitant]
     Dosage: 100 MG, QD
     Route: 048
     Dates: start: 20130204

REACTIONS (1)
  - Dermatitis acneiform [Recovering/Resolving]
